FAERS Safety Report 7701058-4 (Version None)
Quarter: 2011Q3

REPORT INFORMATION
  Report Type: 
  Country: None (occurrence: None)
  Receive Date: 20110822
  Receipt Date: 20110817
  Transmission Date: 20111222
  Serious: Yes (Hospitalization, Other)
  Sender: FDA-Public Use
  Company Number: US-PFIZER INC-2011190494

PATIENT
  Sex: Male
  Weight: 80.73 kg

DRUGS (23)
  1. POTASSIUM CHLORIDE [Concomitant]
     Dosage: UNK
     Dates: end: 20100101
  2. PROCHLORPERAZINE EDISYLATE [Concomitant]
     Dosage: UNK
  3. SENNA ALEXANDRINA [Concomitant]
     Dosage: UNK
     Dates: start: 20110302
  4. DEXAMETHASONE SODIUM PHOSPHATE [Suspect]
     Indication: MULTIPLE MYELOMA
     Dosage: 40 MG, CYCLIC DAYS 1 THROUGH 4
     Route: 048
     Dates: start: 20110131
  5. ZOLPIDEM TARTRATE [Concomitant]
     Dosage: UNK
     Dates: start: 20110602
  6. LYRICA [Suspect]
     Dosage: 100 MG, 3X/DAY
     Dates: start: 20110613
  7. PAMIDRONATE DISODIUM [Concomitant]
     Dosage: UNK
     Dates: start: 20110131
  8. ONDANSETRON [Concomitant]
  9. METFORMIN [Concomitant]
     Dosage: UNK
     Dates: start: 20020101
  10. OMEPRAZOLE [Concomitant]
     Dosage: UNK
     Dates: start: 20110328
  11. VICODIN [Suspect]
     Dosage: UNK
     Dates: start: 20090101
  12. BORTEZOMIB [Suspect]
     Indication: MULTIPLE MYELOMA
     Dosage: 162 MG, CYCLIC DAYS 1 THROUGH 4
     Route: 042
     Dates: start: 20110131
  13. QUINAPRIL [Concomitant]
     Dosage: UNK
     Dates: end: 20050101
  14. MAGNESIUM HYDROXIDE [Concomitant]
     Dosage: UNK
     Dates: start: 20110311
  15. NIFEDIPINE [Concomitant]
     Dosage: UNK
     Dates: end: 20050101
  16. CHLORTALIDONE [Concomitant]
     Dosage: UNK
     Dates: end: 20070101
  17. PRAVASTATIN [Concomitant]
     Dosage: UNK
     Dates: end: 20060101
  18. LORATADINE [Concomitant]
     Dosage: UNK
     Dates: start: 20110425
  19. LYRICA [Suspect]
     Dosage: UNK
     Dates: start: 20110523, end: 20110613
  20. BORTEZOMIB [Suspect]
     Indication: MULTIPLE MYELOMA
     Dosage: 2.5 MG, CYCLIC DAYS 1, 4, 8 AND 11
     Route: 042
     Dates: start: 20110131
  21. GLIPIZIDE [Concomitant]
     Dosage: UNK
     Dates: start: 20040101
  22. FLUCONAZOLE [Concomitant]
     Dosage: UNK
     Dates: start: 20110425
  23. INSULIN LISPRO [Concomitant]
     Dosage: UNK

REACTIONS (6)
  - MIDDLE INSOMNIA [None]
  - FALL [None]
  - BALANCE DISORDER [None]
  - ABNORMAL BEHAVIOUR [None]
  - ATRIOVENTRICULAR BLOCK FIRST DEGREE [None]
  - BUNDLE BRANCH BLOCK LEFT [None]
